FAERS Safety Report 6862424-2 (Version None)
Quarter: 2010Q3

REPORT INFORMATION
  Report Type: 
  Country: None (occurrence: None)
  Receive Date: 20100719
  Receipt Date: 20100714
  Transmission Date: 20110219
  Serious: Yes (Other)
  Sender: FDA-Public Use
  Company Number: 2010SP037950

PATIENT
  Age: 23 Year
  Sex: Male
  Weight: 73 kg

DRUGS (1)
  1. CRONOLEVEL (BETAMETHASONE SODIUM PHOSPHATE/DIPROPIONATE) (BETAMETHASON [Suspect]
     Indication: PSORIASIS
     Dosage: 1 DF;PRN
     Dates: start: 20100101

REACTIONS (2)
  - LOCALISED OEDEMA [None]
  - SWELLING FACE [None]
